FAERS Safety Report 5127893-7 (Version None)
Quarter: 2006Q4

REPORT INFORMATION
  Report Type: 
  Country: None (occurrence: None)
  Receive Date: 20061011
  Receipt Date: 20060926
  Transmission Date: 20070319
  Serious: Yes (Death, Other)
  Sender: FDA-Public Use
  Company Number: 2006AL002984

PATIENT
  Age: 43 Year
  Sex: Female

DRUGS (8)
  1. CITALOPRAM HYDROBROMIDE [Suspect]
     Indication: DEPRESSION
     Dosage: 10 MG; QD; PO
     Route: 048
     Dates: start: 20030422, end: 20060201
  2. AMIODIPINE [Concomitant]
  3. BUDESONIDE [Concomitant]
  4. DIAZEPAM [Concomitant]
  5. FENTANYL [Concomitant]
  6. RANITIDINE [Concomitant]
  7. TERBUTALINE [Concomitant]
  8. ZOPICLONE [Concomitant]

REACTIONS (1)
  - DRUG TOXICITY [None]
